FAERS Safety Report 7582433-8 (Version None)
Quarter: 2011Q2

REPORT INFORMATION
  Report Type: 
  Country: None (occurrence: None)
  Receive Date: 20110630
  Receipt Date: 20110627
  Transmission Date: 20111010
  Serious: Yes (Death, Hospitalization, Other)
  Sender: FDA-Public Use
  Company Number: GB-JNJFOC-20110408545

PATIENT
  Sex: Male

DRUGS (19)
  1. RISPERIDONE [Suspect]
     Route: 048
     Dates: start: 20100102, end: 20100102
  2. RISPERIDONE [Suspect]
     Route: 048
     Dates: start: 20100106, end: 20100106
  3. RISPERIDONE [Suspect]
     Route: 048
     Dates: start: 20100105, end: 20100105
  4. RISPERIDONE [Suspect]
     Route: 048
     Dates: start: 20100127, end: 20100128
  5. RISPERIDONE [Suspect]
     Route: 048
     Dates: start: 20100209, end: 20100212
  6. RISPERIDONE [Suspect]
     Route: 048
     Dates: start: 20100108, end: 20100115
  7. RISPERIDONE [Suspect]
     Route: 048
     Dates: start: 20100117, end: 20100122
  8. RISPERIDONE [Suspect]
     Route: 048
     Dates: start: 20100125, end: 20100126
  9. RISPERIDONE [Suspect]
     Route: 048
     Dates: start: 20100107, end: 20100107
  10. RISPERIDONE [Suspect]
     Route: 048
     Dates: start: 20091229, end: 20091230
  11. RISPERIDONE [Suspect]
     Route: 048
  12. ZOPICLONE [Suspect]
     Indication: PRODUCT USED FOR UNKNOWN INDICATION
     Route: 065
     Dates: start: 20091229, end: 20100125
  13. RISPERIDONE [Suspect]
     Indication: VASCULAR DEMENTIA
     Route: 048
     Dates: start: 20100213
  14. RISPERIDONE [Suspect]
     Route: 048
     Dates: start: 20091231, end: 20100101
  15. RISPERIDONE [Suspect]
     Route: 048
     Dates: start: 20100104, end: 20100104
  16. RISPERIDONE [Suspect]
     Route: 048
     Dates: start: 20100123, end: 20100123
  17. RISPERIDONE [Suspect]
     Route: 048
     Dates: start: 20100124, end: 20100124
  18. RISPERIDONE [Suspect]
     Route: 048
     Dates: start: 20100103, end: 20100103
  19. RISPERIDONE [Suspect]
     Route: 048
     Dates: start: 20100116, end: 20100116

REACTIONS (8)
  - FEELING ABNORMAL [None]
  - SEDATION [None]
  - DEPRESSED LEVEL OF CONSCIOUSNESS [None]
  - OFF LABEL USE [None]
  - IMMOBILE [None]
  - CEREBROVASCULAR ACCIDENT [None]
  - DEATH [None]
  - INCONTINENCE [None]
